FAERS Safety Report 4357933-4 (Version None)
Quarter: 2004Q2

REPORT INFORMATION
  Report Type: 
  Country: None (occurrence: None)
  Receive Date: 20040514
  Receipt Date: 20040504
  Transmission Date: 20050107
  Serious: Yes (Disabling)
  Sender: FDA-Public Use
  Company Number: CH-BRISTOL-MYERS SQUIBB COMPANY-12578563

PATIENT
  Age: 31 Year
  Sex: Female

DRUGS (2)
  1. ABILIFY [Suspect]
     Indication: SCHIZOPHRENIA
     Route: 048
     Dates: start: 20040203, end: 20040417
  2. CLOZAPINE [Concomitant]
     Dosage: STEP REDUCTION FROM 100 MG TO 0 MG (EVERY WEEK REDUCTION OF 12.5 MG)

REACTIONS (2)
  - PSYCHOTIC DISORDER [None]
  - SLEEP DISORDER [None]
